FAERS Safety Report 14240770 (Version 2)
Quarter: 2018Q1

REPORT INFORMATION
  Report Type: Spontaneous
  Country: US (occurrence: US)
  Receive Date: 20171130
  Receipt Date: 20180326
  Transmission Date: 20180508
  Serious: Yes (Other)
  Sender: FDA-Public Use
  Company Number: US-GLAXOSMITHKLINE-US2017105317

PATIENT
  Age: 61 Year
  Sex: Female

DRUGS (1)
  1. SENSODYNE [Suspect]
     Active Substance: POTASSIUM NITRATE\SODIUM FLUORIDE
     Indication: DENTAL CLEANING
     Dosage: UNK
     Dates: start: 20170701, end: 20170712

REACTIONS (15)
  - Oral discomfort [Recovered/Resolved]
  - Lip pain [Unknown]
  - Lip swelling [Recovered/Resolved]
  - Swelling face [Recovering/Resolving]
  - Mouth ulceration [Recovering/Resolving]
  - Facial pain [Recovering/Resolving]
  - Product quality issue [Unknown]
  - Chemical burn of gastrointestinal tract [Unknown]
  - Glossodynia [Recovered/Resolved]
  - Tongue discomfort [Recovering/Resolving]
  - Dental discomfort [Unknown]
  - Lip disorder [Recovered/Resolved]
  - Lip erythema [Recovered/Resolved]
  - Tongue erythema [Recovered/Resolved]
  - Oral mucosal erythema [Recovered/Resolved]

NARRATIVE: CASE EVENT DATE: 20170701
